FAERS Safety Report 5494375-2 (Version None)
Quarter: 2007Q4

REPORT INFORMATION
  Report Type: 
  Country: None (occurrence: None)
  Receive Date: 20071024
  Receipt Date: 20071012
  Transmission Date: 20080405
  Serious: Yes (Hospitalization, Other)
  Sender: FDA-Public Use
  Company Number: JP-BRISTOL-MYERS SQUIBB COMPANY-13908363

PATIENT
  Age: 67 Year
  Sex: Male

DRUGS (7)
  1. GATIFLOXACIN [Suspect]
     Indication: CYSTITIS
     Route: 048
     Dates: start: 20070817, end: 20070820
  2. PONTAL [Concomitant]
     Route: 048
  3. BASEN [Concomitant]
     Route: 048
     Dates: start: 20070615
  4. GLYBURIDE [Concomitant]
     Route: 048
     Dates: start: 20070615
  5. URIEF [Concomitant]
     Route: 048
     Dates: start: 20070615
  6. SYLLABLE [Concomitant]
     Route: 048
     Dates: start: 20070615
  7. PODONIN S [Concomitant]
     Route: 048
     Dates: start: 20070615

REACTIONS (1)
  - HYPOGLYCAEMIA [None]
